FAERS Safety Report 26073589 (Version 1)
Quarter: 2025Q4

REPORT INFORMATION
  Report Type: Spontaneous
  Country: JP (occurrence: JP)
  Receive Date: 20251121
  Receipt Date: 20251121
  Transmission Date: 20260117
  Serious: Yes (Death, Other)
  Sender: GLAXOSMITHKLINE
  Company Number: JP-GSKJP-JP2025149255AA

PATIENT
  Sex: Female

DRUGS (1)
  1. MOMELOTINIB [Suspect]
     Active Substance: MOMELOTINIB
     Indication: Myelofibrosis
     Dosage: 200 MG, 1D

REACTIONS (5)
  - Sepsis [Fatal]
  - Pneumonia [Fatal]
  - Altered state of consciousness [Fatal]
  - Hypotension [Fatal]
  - Oral candidiasis [Unknown]

NARRATIVE: CASE EVENT DATE: 20251031
